FAERS Safety Report 19406308 (Version 1)
Quarter: 2021Q2

REPORT INFORMATION
  Report Type: Spontaneous
  Country: US (occurrence: US)
  Receive Date: 20210611
  Receipt Date: 20210611
  Transmission Date: 20210717
  Serious: No
  Sender: FDA-Public Use
  Company Number: US-PFIZER INC-2021308353

PATIENT
  Age: 15 Year
  Sex: Female
  Weight: 45.81 kg

DRUGS (1)
  1. DEPO?PROVERA [Suspect]
     Active Substance: MEDROXYPROGESTERONE ACETATE
     Indication: CONTRACEPTION
     Dosage: 104 MG

REACTIONS (2)
  - Poor quality device used [Unknown]
  - Syringe issue [Unknown]

NARRATIVE: CASE EVENT DATE: 20210302
